FAERS Safety Report 18914875 (Version 1)
Quarter: 2021Q1

REPORT INFORMATION
  Report Type: Spontaneous
  Country: US (occurrence: US)
  Receive Date: 20210219
  Receipt Date: 20210219
  Transmission Date: 20210420
  Serious: No
  Sender: FDA-Public Use
  Company Number: US-ASTRAZENECA-2021A033566

PATIENT
  Sex: Female

DRUGS (2)
  1. DILTIAZEM. [Concomitant]
     Active Substance: DILTIAZEM
     Indication: BLOOD PRESSURE MEASUREMENT
  2. PULMICORT FLEXHALER [Suspect]
     Active Substance: BUDESONIDE
     Dosage: 180.0UG AS REQUIRED
     Route: 055

REACTIONS (9)
  - Emphysema [Unknown]
  - Hypersensitivity [Unknown]
  - Chronic obstructive pulmonary disease [Unknown]
  - Bipolar disorder [Unknown]
  - Depression [Unknown]
  - Intentional product misuse [Unknown]
  - Attention deficit hyperactivity disorder [Unknown]
  - Dyspnoea [Unknown]
  - Feeling abnormal [Unknown]
